FAERS Safety Report 5037610-7 (Version None)
Quarter: 2006Q2

REPORT INFORMATION
  Report Type: 
  Country: None (occurrence: None)
  Receive Date: 20060608
  Receipt Date: 20060227
  Transmission Date: 20061013
  Serious: Yes (Hospitalization)
  Sender: FDA-Public Use
  Company Number: DE-2006-004316

PATIENT
  Sex: Male

DRUGS (1)
  1. QUADRAMET [Suspect]
     Dosage: 1 DOSE
     Dates: start: 20060215, end: 20060215

REACTIONS (1)
  - ARTHRALGIA [None]
